FAERS Safety Report 9959467 (Version 1)
Quarter: 2014Q1

REPORT INFORMATION
  Report Type: Report from Study
  Country: US (occurrence: US)
  Receive Date: 20140305
  Receipt Date: 20140305
  Transmission Date: 20141002
  Serious: No
  Sender: FDA-Public Use
  Company Number: US-ABBVIE-13P-163-1104492-00

PATIENT
  Age: 59 Year
  Sex: Female
  Weight: 81.72 kg

DRUGS (8)
  1. HUMIRA [Suspect]
     Indication: PSORIATIC ARTHROPATHY
     Dates: start: 20130523
  2. FISH OIL [Concomitant]
     Indication: VITAMIN SUPPLEMENTATION
  3. IBUPROFEN [Concomitant]
     Indication: PAIN
  4. METHOTREXATE [Concomitant]
     Indication: PSORIATIC ARTHROPATHY
  5. PREDNISONE [Concomitant]
     Indication: PSORIATIC ARTHROPATHY
  6. SIMVASTATIN [Concomitant]
     Indication: BLOOD CHOLESTEROL INCREASED
  7. FOLIC ACID [Concomitant]
     Indication: VITAMIN SUPPLEMENTATION
  8. LOSARTAN [Concomitant]
     Indication: HYPERTENSION

REACTIONS (2)
  - Sunburn [Recovered/Resolved]
  - Nasopharyngitis [Not Recovered/Not Resolved]
